FAERS Safety Report 10802114 (Version 2)
Quarter: 2015Q2

REPORT INFORMATION
  Report Type: Spontaneous
  Country: GB (occurrence: GB)
  Receive Date: 20150217
  Receipt Date: 20150527
  Transmission Date: 20150821
  Serious: Yes (Hospitalization)
  Sender: FDA-Public Use
  Company Number: GB-TEVA-539001ISR

PATIENT
  Age: 66 Year
  Sex: Male
  Weight: 72.6 kg

DRUGS (4)
  1. XELODA [Suspect]
     Active Substance: CAPECITABINE
     Indication: GASTRIC CANCER
     Dosage: 11-OCT-2013: MOST RECENT DOSE
     Route: 048
     Dates: start: 20130809
  2. EPIRUBICIN [Suspect]
     Active Substance: EPIRUBICIN
     Indication: GASTRIC CANCER
     Dosage: 19-SEP-2013: MOST RECENT DOSE
     Route: 042
     Dates: start: 20130809
  3. CISPLATIN. [Suspect]
     Active Substance: CISPLATIN
     Indication: GASTRIC CANCER
     Dosage: 19-SEP-2013: MOST RECENT DOSE
     Route: 042
     Dates: start: 20130809
  4. AVASTIN [Suspect]
     Active Substance: BEVACIZUMAB
     Indication: GASTRIC CANCER
     Dosage: 19-SEP-2013: MOST RECENT DOSE
     Route: 042
     Dates: start: 20130809

REACTIONS (1)
  - Abdominal pain [Recovered/Resolved]

NARRATIVE: CASE EVENT DATE: 20140130
